FAERS Safety Report 4343136-6 (Version None)
Quarter: 2004Q2

REPORT INFORMATION
  Report Type: 
  Country: None (occurrence: None)
  Receive Date: 20040421
  Receipt Date: 20040412
  Transmission Date: 20050107
  Serious: Yes (Death, Other)
  Sender: FDA-Public Use
  Company Number: US-BRISTOL-MYERS SQUIBB COMPANY-12563607

PATIENT
  Age: 67 Year
  Sex: Male

DRUGS (5)
  1. CISPLATIN [Suspect]
     Indication: CHRONIC LYMPHOCYTIC LEUKAEMIA
  2. VP-16 [Suspect]
     Indication: CHRONIC LYMPHOCYTIC LEUKAEMIA
  3. ARA-C [Suspect]
     Indication: CHRONIC LYMPHOCYTIC LEUKAEMIA
  4. DEXTROSE 5% 1/2 NORMAL SALINE [Concomitant]
  5. ALLOPURINOL [Concomitant]
     Route: 048

REACTIONS (3)
  - PANCYTOPENIA [None]
  - SEPSIS [None]
  - TUMOUR LYSIS SYNDROME [None]
